FAERS Safety Report 4582917-0 (Version None)
Quarter: 2005Q1

REPORT INFORMATION
  Report Type: 
  Country: None (occurrence: None)
  Receive Date: 20050127
  Receipt Date: 20040915
  Transmission Date: 20050727
  Serious: No
  Sender: FDA-Public Use
  Company Number: USA040978323

PATIENT
  Age: 65 Year
  Sex: Male
  Weight: 69 kg

DRUGS (5)
  1. STRATTERA [Suspect]
     Indication: ATTENTION DEFICIT/HYPERACTIVITY DISORDER
     Dosage: 10 MG DAY
     Dates: start: 20040901
  2. LIPITOR [Concomitant]
  3. PLAVIX [Concomitant]
  4. KLONOPIN [Concomitant]
  5. ASPIRIN [Concomitant]

REACTIONS (5)
  - CONFUSIONAL STATE [None]
  - DECREASED APPETITE [None]
  - DIZZINESS [None]
  - DYSURIA [None]
  - INSOMNIA [None]
